FAERS Safety Report 8602487-7 (Version None)
Quarter: 2012Q3

REPORT INFORMATION
  Report Type: 
  Country: None (occurrence: None)
  Receive Date: 20120817
  Receipt Date: 20120112
  Transmission Date: 20120928
  Serious: Yes (Other)
  Sender: FDA-Public Use
  Company Number: US-ROCHE-1101619

PATIENT
  Age: 63 Year
  Sex: Female

DRUGS (6)
  1. SOLU-MEDROL [Concomitant]
     Route: 042
  2. ACTIVASE [Suspect]
     Indication: MYOCARDIAL INFARCTION
  3. HEPARIN [Concomitant]
     Route: 040
  4. MORPHINE SULFATE [Concomitant]
  5. BENADRYL [Concomitant]
     Route: 042
  6. LIDOCAINE [Concomitant]
     Route: 040

REACTIONS (4)
  - DIZZINESS [None]
  - NAUSEA [None]
  - CHEST DISCOMFORT [None]
  - ARRHYTHMIA [None]
